FAERS Safety Report 14158424 (Version 4)
Quarter: 2018Q1

REPORT INFORMATION
  Report Type: Spontaneous
  Country: JP (occurrence: JP)
  Receive Date: 20171103
  Receipt Date: 20180307
  Transmission Date: 20180508
  Serious: Yes (Life-Threatening, Hospitalization, Other)
  Sender: FDA-Public Use
  Company Number: JP-ELI_LILLY_AND_COMPANY-JP201711000439

PATIENT
  Age: 65 Year
  Sex: Male
  Weight: 46 kg

DRUGS (2)
  1. ERBITUX [Suspect]
     Active Substance: CETUXIMAB
     Indication: TONGUE CARCINOMA STAGE 0
     Dosage: 665.6 MG, WEEKLY (1/W)
     Route: 041
     Dates: start: 20170830, end: 20170830
  2. ERBITUX [Suspect]
     Active Substance: CETUXIMAB
     Dosage: 250 MG/M2, WEEKLY (1/W)
     Route: 041
     Dates: start: 20170906, end: 20170913

REACTIONS (5)
  - Hypomagnesaemia [Recovered/Resolved]
  - Large intestine perforation [Recovering/Resolving]
  - Staphylococcus test positive [Recovered/Resolved]
  - Septic shock [Recovering/Resolving]
  - Chronic obstructive pulmonary disease [Recovering/Resolving]

NARRATIVE: CASE EVENT DATE: 20170917
